FAERS Safety Report 5037439-X (Version None)
Quarter: 2006Q2

REPORT INFORMATION
  Report Type: 
  Country: None (occurrence: None)
  Receive Date: 20060622
  Receipt Date: 20060622
  Transmission Date: 20061013
  Serious: Yes (Hospitalization)
  Sender: FDA-Public Use
  Company Number: None

PATIENT
  Sex: Male
  Weight: 76.9 kg

DRUGS (6)
  1. BLEOMYCIN [Suspect]
     Dosage: 59.1 MG
  2. CYCLOPHOSPHAMIDE [Suspect]
     Dosage: 3150 MG
  3. DOXORUBICIN HYDROCHLORIDE [Suspect]
     Dosage: 200 MG
  4. PREDNISONE [Suspect]
     Dosage: 1120 MG
  5. VINCRISTINE SULFATE [Suspect]
     Dosage: 11 MG
  6. ETOPOSIDE [Suspect]
     Dosage: 1470MG

REACTIONS (11)
  - ASCITES [None]
  - CLOSTRIDIAL INFECTION [None]
  - COLITIS PSEUDOMEMBRANOUS [None]
  - DISSEMINATED INTRAVASCULAR COAGULATION [None]
  - DYSPNOEA [None]
  - FEBRILE NEUTROPENIA [None]
  - HEPATIC FUNCTION ABNORMAL [None]
  - HYPOALBUMINAEMIA [None]
  - NAUSEA [None]
  - RENAL FAILURE [None]
  - VOMITING [None]
